FAERS Safety Report 25481866 (Version 2)
Quarter: 2025Q3

REPORT INFORMATION
  Report Type: Report from Study
  Country: EU (occurrence: EU)
  Receive Date: 20250626
  Receipt Date: 20250902
  Transmission Date: 20251020
  Serious: Yes (Other)
  Sender: TEVA
  Company Number: EU-TEVA-VS-3344686

PATIENT
  Age: 49 Year
  Sex: Female

DRUGS (1)
  1. FREMANEZUMAB [Suspect]
     Active Substance: FREMANEZUMAB
     Indication: Migraine without aura
     Route: 058

REACTIONS (2)
  - Extrasystoles [Recovered/Resolved]
  - Hypertension [Recovered/Resolved]
